FAERS Safety Report 6467253-X (Version None)
Quarter: 2009Q4

REPORT INFORMATION
  Report Type: 
  Country: None (occurrence: None)
  Receive Date: 20091202
  Receipt Date: 20091130
  Transmission Date: 20100525
  Serious: Yes (Other)
  Sender: FDA-Public Use
  Company Number: ES-BRISTOL-MYERS SQUIBB COMPANY-14859821

PATIENT
  Age: 73 Year
  Sex: Female
  Weight: 60 kg

DRUGS (2)
  1. ORENCIA [Suspect]
     Indication: RHEUMATOID ARTHRITIS
     Dosage: STARTED 2 OR 3 MONTHS AGO,  2VIALS MONTHLY
     Route: 042
     Dates: start: 20090314, end: 20090901
  2. ARAVA [Suspect]
     Dates: end: 20090501

REACTIONS (1)
  - CHOLESTASIS [None]
